FAERS Safety Report 13623795 (Version 2)
Quarter: 2017Q2

REPORT INFORMATION
  Report Type: Spontaneous
  Country: US (occurrence: US)
  Receive Date: 20170607
  Receipt Date: 20170614
  Transmission Date: 20170830
  Serious: Yes (Hospitalization, Other)
  Sender: FDA-Public Use
  Company Number: US-GLAXOSMITHKLINE-US2015GSK175547

PATIENT
  Age: 32 Year
  Sex: Female

DRUGS (1)
  1. NICOTINE. [Suspect]
     Active Substance: NICOTINE
     Indication: EX-TOBACCO USER
     Dosage: 21 MG/24-HR, Z
     Route: 062

REACTIONS (10)
  - Gastrointestinal sounds abnormal [Recovering/Resolving]
  - Brugada syndrome [Unknown]
  - Palpitations [Recovered/Resolved]
  - Abdominal pain [Recovered/Resolved]
  - Tobacco poisoning [Recovered/Resolved]
  - Toxicity to various agents [Unknown]
  - Diarrhoea [Recovered/Resolved]
  - Abdominal pain [Recovering/Resolving]
  - Electrocardiogram abnormal [Recovered/Resolved]
  - Insomnia [Recovered/Resolved]
